FAERS Safety Report 16923118 (Version 2)
Quarter: 2019Q4

REPORT INFORMATION
  Report Type: Spontaneous
  Country: BR (occurrence: BR)
  Receive Date: 20191016
  Receipt Date: 20191018
  Transmission Date: 20200122
  Serious: Yes (Hospitalization, Other)
  Sender: FDA-Public Use
  Company Number: BR-ABBVIE-19K-020-2961573-00

PATIENT
  Sex: Male

DRUGS (1)
  1. LOPINAVIR/RITONAVIR [Suspect]
     Active Substance: LOPINAVIR\RITONAVIR
     Indication: PRODUCT USED FOR UNKNOWN INDICATION
     Route: 048
     Dates: start: 20190923

REACTIONS (3)
  - Bronchiolitis [Unknown]
  - Hospitalisation [Unknown]
  - Infection [Unknown]

NARRATIVE: CASE EVENT DATE: 2019
